FAERS Safety Report 7520504-2 (Version None)
Quarter: 2011Q2

REPORT INFORMATION
  Report Type: 
  Country: None (occurrence: None)
  Receive Date: 20110602
  Receipt Date: 20110526
  Transmission Date: 20111010
  Serious: Yes (Hospitalization, Other)
  Sender: FDA-Public Use
  Company Number: GB-ELI_LILLY_AND_COMPANY-GB201105003255

PATIENT
  Sex: Male
  Weight: 49.2 kg

DRUGS (2)
  1. HUMALOG [Suspect]
     Dosage: UNK UNK, TID
     Route: 058
     Dates: start: 20090101
  2. LANTUS [Concomitant]
     Dosage: UNK

REACTIONS (3)
  - DIABETIC KETOACIDOSIS [None]
  - DRUG DOSE OMISSION [None]
  - GLYCOSYLATED HAEMOGLOBIN INCREASED [None]
